FAERS Safety Report 17816612 (Version 3)
Quarter: 2020Q2

REPORT INFORMATION
  Report Type: Report from Study
  Country: BE (occurrence: BE)
  Receive Date: 20200522
  Receipt Date: 20200629
  Transmission Date: 20200714
  Serious: Yes (Hospitalization)
  Sender: FDA-Public Use
  Company Number: BE-ROCHE-2600461

PATIENT
  Age: 70 Year
  Sex: Female
  Weight: 56 kg

DRUGS (6)
  1. EPIRUBICIN [Suspect]
     Active Substance: EPIRUBICIN
     Indication: TRIPLE NEGATIVE BREAST CANCER
     Dosage: DATE OF MOST RECENT DOSE OF EPIRUBICIN (115 MG) PRIOR TO AE ONSET: 05/MAY/2020?DATE OF MOST RECENT D
     Route: 042
     Dates: start: 20200414
  2. PEGFILGRASTIM [Concomitant]
     Active Substance: PEGFILGRASTIM
     Dosage: START AND END TIME: 15:00
     Route: 058
     Dates: start: 20200505, end: 20200505
  3. ATEZOLIZUMAB. [Suspect]
     Active Substance: ATEZOLIZUMAB
     Indication: TRIPLE NEGATIVE BREAST CANCER
     Dosage: DATE OF MOST RECENT DOSE OF ATEZOLIZUMAB (840 MG) PRIOR TO AE ONSET: 05/MAY/2020
     Route: 042
     Dates: start: 20200122
  4. CYCLOPHOSPHAMIDE. [Suspect]
     Active Substance: CYCLOPHOSPHAMIDE
     Indication: TRIPLE NEGATIVE BREAST CANCER
     Dosage: DOSE OF LAST CYCLOPHOSPHAMIDE (768MG) ADMINISTERED PRIOR TO AE ONSET: 05/MAY/2020?DOSE OF LAST CYCLO
     Route: 042
     Dates: start: 20200414
  5. PACLITAXEL. [Suspect]
     Active Substance: PACLITAXEL
     Indication: TRIPLE NEGATIVE BREAST CANCER
     Dosage: DOSE OF LAST PACLITAXEL (80 MG) ADMINISTERED PRIOR TO SAE ONSET: 07/APR/2020?DOSE OF LAST PACLITAXEL
     Route: 042
     Dates: start: 20200122
  6. PEGFILGRASTIM [Concomitant]
     Active Substance: PEGFILGRASTIM
     Dosage: START AND END TIME: 15:00
     Route: 058
     Dates: start: 20200414, end: 20200414

REACTIONS (2)
  - Ophthalmic herpes zoster [Not Recovered/Not Resolved]
  - Ophthalmic herpes zoster [Not Recovered/Not Resolved]

NARRATIVE: CASE EVENT DATE: 20200507
